FAERS Safety Report 21007271 (Version 1)
Quarter: 2022Q2

REPORT INFORMATION
  Report Type: Spontaneous
  Country: US (occurrence: US)
  Receive Date: 20220625
  Receipt Date: 20220625
  Transmission Date: 20220721
  Serious: No
  Sender: FDA-Public Use
  Company Number: US-BRISTOL-MYERS SQUIBB COMPANY-2022-062761

PATIENT
  Age: 90 Year
  Sex: Female

DRUGS (1)
  1. REVLIMID [Suspect]
     Active Substance: LENALIDOMIDE
     Indication: Plasmacytoma
     Dosage: FREQUENCY-TAKE 1 CAPSULE BY MOUTH DAILY FOR 14 DAYS AND 1 WEEK OFF OF21 DAYS CYCLE.
     Route: 048
     Dates: start: 20220531

REACTIONS (3)
  - Back pain [Unknown]
  - Pain [Unknown]
  - Intentional product use issue [Unknown]
